FAERS Safety Report 17555906 (Version 1)
Quarter: 2020Q1

REPORT INFORMATION
  Report Type: Spontaneous
  Country: NL (occurrence: NL)
  Receive Date: 20200318
  Receipt Date: 20200318
  Transmission Date: 20200409
  Serious: Yes (Other)
  Sender: FDA-Public Use
  Company Number: NL-MYLANLABS-2020M1027280

PATIENT
  Sex: Male

DRUGS (1)
  1. PANTOPRAZOLE [Suspect]
     Active Substance: PANTOPRAZOLE
     Indication: REGURGITATION
     Dosage: MAAGSAPRESISTENTE TABLET, 20 MG (MILLIGRAM), 1 KEER PER DAG, 1
     Dates: start: 20191009, end: 20200129

REACTIONS (1)
  - Erectile dysfunction [Recovered/Resolved]
